FAERS Safety Report 9830397 (Version 2)
Quarter: 2014Q2

REPORT INFORMATION
  Report Type: Report from Study
  Country: FR (occurrence: FR)
  Receive Date: 20140120
  Receipt Date: 20140602
  Transmission Date: 20141212
  Serious: Yes (Death, Hospitalization)
  Sender: FDA-Public Use
  Company Number: FR-ROCHE-1334861

PATIENT
  Age: 74 Year
  Sex: Female

DRUGS (7)
  1. RITUXIMAB [Suspect]
     Indication: ANTI-NEUTROPHIL CYTOPLASMIC ANTIBODY POSITIVE VASCULITIS
     Dosage: RITUXIMAB INFUSIONS BEFORE SAE OCCURRENCE: INFUSION OF RITUXIMAB 500 MG (D1) ON 22/FEB/2013; INFUSIO
     Route: 042
     Dates: start: 2012
  2. PREDNISOLONE [Concomitant]
     Indication: ANTI-NEUTROPHIL CYTOPLASMIC ANTIBODY POSITIVE VASCULITIS
     Route: 048
  3. PARACETAMOL [Concomitant]
     Indication: PAIN
     Route: 048
  4. TOPALGIC (FRANCE) [Concomitant]
     Indication: PAIN
     Route: 048
  5. LOVENOX [Concomitant]
     Indication: THROMBOSIS PROPHYLAXIS
     Route: 058
  6. OXYCONTIN [Concomitant]
     Indication: PAIN
     Route: 048
     Dates: end: 20130916
  7. INEXIUM [Concomitant]
     Indication: PROPHYLAXIS
     Route: 048

REACTIONS (3)
  - Metastases to meninges [Fatal]
  - Tumour compression [Not Recovered/Not Resolved]
  - Spinal cord infection [Fatal]
